FAERS Safety Report 4614895-X (Version None)
Quarter: 2005Q1

REPORT INFORMATION
  Report Type: 
  Country: None (occurrence: None)
  Receive Date: 20050318
  Receipt Date: 20050318
  Transmission Date: 20050727
  Serious: Yes (Other)
  Sender: FDA-Public Use
  Company Number: None

PATIENT
  Age: 55 Year
  Sex: Female
  Weight: 63.5036 kg

DRUGS (1)
  1. ZITHROMAX [Suspect]
     Indication: SINUSITIS
     Dosage: 500 MG DAY 1, THEN 250MG DAYS 2,3 + 4
     Dates: start: 20041219, end: 20041222

REACTIONS (6)
  - BALANCE DISORDER [None]
  - NAUSEA [None]
  - SALIVA ALTERED [None]
  - SINUS HEADACHE [None]
  - TINNITUS [None]
  - VISION BLURRED [None]
